FAERS Safety Report 8687408 (Version 2)
Quarter: 2012Q4

REPORT INFORMATION
  Report Type: 
  Country: FR (occurrence: FR)
  Receive Date: 20120727
  Receipt Date: 20120924
  Transmission Date: 20130627
  Serious: Yes (Life-Threatening, Hospitalization, Other)
  Sender: FDA-Public Use
  Company Number: FR-JNJFOC-20120711580

PATIENT
  Age: 70 Year
  Sex: Male
  Weight: 61 kg

DRUGS (8)
  1. REMICADE [Suspect]
     Indication: RHEUMATOID ARTHRITIS
     Dosage: second infusion
     Route: 042
     Dates: start: 20120606, end: 20120606
  2. REMICADE [Suspect]
     Indication: RHEUMATOID ARTHRITIS
     Route: 042
     Dates: start: 20120523
  3. METHOTREXATE [Concomitant]
     Route: 048
  4. CORTICOSTEROID NOS [Concomitant]
     Route: 065
  5. SPECIAFOLDINE [Concomitant]
     Route: 048
  6. MOPRAL [Concomitant]
     Route: 048
  7. LYRICA [Concomitant]
     Route: 048
  8. IXPRIM [Concomitant]
     Route: 065

REACTIONS (1)
  - Pneumocystis jiroveci pneumonia [Recovered/Resolved]
